FAERS Safety Report 16112633 (Version 3)
Quarter: 2019Q4

REPORT INFORMATION
  Report Type: Spontaneous
  Country: DE (occurrence: DE)
  Receive Date: 20190325
  Receipt Date: 20191018
  Transmission Date: 20200122
  Serious: Yes (Death, Other)
  Sender: FDA-Public Use
  Company Number: DE-TEVA-2019-DE-1028165

PATIENT
  Age: 58 Year
  Sex: Male

DRUGS (2)
  1. DICLOFENAC [Suspect]
     Active Substance: DICLOFENAC
     Indication: SPINAL PAIN
     Dosage: 1 DOSAGE FORMS DAILY;
     Route: 030
     Dates: start: 20160324
  2. DEXAMETHASONE. [Suspect]
     Active Substance: DEXAMETHASONE
     Indication: SPINAL PAIN
     Dosage: 1 DOSAGE FORMS DAILY;
     Route: 030
     Dates: start: 20160324

REACTIONS (4)
  - Medication error [Fatal]
  - Circulatory collapse [Fatal]
  - Anaphylactic shock [Fatal]
  - Contraindicated product administered [Fatal]

NARRATIVE: CASE EVENT DATE: 20160324
